FAERS Safety Report 4398240-3 (Version None)
Quarter: 2004Q3

REPORT INFORMATION
  Report Type: 
  Country: None (occurrence: None)
  Receive Date: 20040713
  Receipt Date: 20040707
  Transmission Date: 20050211
  Serious: Yes (Death)
  Sender: FDA-Public Use
  Company Number: 2004AP03500

PATIENT
  Age: 80 Year
  Sex: Male

DRUGS (5)
  1. OMEPRAZOLE [Suspect]
     Dosage: 20 MG DAILY PO
     Route: 048
     Dates: start: 20031110, end: 20040102
  2. GEMCITABINE [Suspect]
     Dates: end: 20031211
  3. CARBOPLATIN [Suspect]
     Dates: end: 20031211
  4. AVAPRO HCT [Concomitant]
  5. PINDOLOL [Concomitant]

REACTIONS (2)
  - ERYTHEMA MULTIFORME [None]
  - TOXIC EPIDERMAL NECROLYSIS [None]
